FAERS Safety Report 22395248 (Version 1)
Quarter: 2023Q2

REPORT INFORMATION
  Report Type: Spontaneous
  Country: US (occurrence: None)
  Receive Date: 20230531
  Receipt Date: 20230531
  Transmission Date: 20230722
  Serious: No
  Sender: FDA-Public Use
  Company Number: None

PATIENT
  Sex: Female

DRUGS (19)
  1. VERZENIO [Suspect]
     Active Substance: ABEMACICLIB
     Indication: Bone cancer
     Dosage: FREQUENCY : TWICE A DAY;?
     Route: 048
  2. VERZENIO [Suspect]
     Active Substance: ABEMACICLIB
     Indication: Metastasis
  3. LISINOPRIL [Concomitant]
     Active Substance: LISINOPRIL
  4. GABAPENTIN [Concomitant]
     Active Substance: GABAPENTIN
  5. OXYCODONE [Concomitant]
     Active Substance: OXYCODONE
  6. PANTOPRAZOLE [Concomitant]
     Active Substance: PANTOPRAZOLE
  7. ANASTROZOLE [Concomitant]
     Active Substance: ANASTROZOLE
  8. VITAMINS [Concomitant]
     Active Substance: VITAMINS
  9. XANAX [Concomitant]
     Active Substance: ALPRAZOLAM
  10. POTASSIUM CHLORIDE [Concomitant]
     Active Substance: POTASSIUM CHLORIDE
  11. AMOXICILLIN [Concomitant]
     Active Substance: AMOXICILLIN
  12. MUCINEX [Concomitant]
     Active Substance: GUAIFENESIN
  13. LEVOFLOXACIN [Concomitant]
     Active Substance: LEVOFLOXACIN
  14. VENLAFAXINE [Concomitant]
     Active Substance: VENLAFAXINE HYDROCHLORIDE
  15. MELOXICAM [Concomitant]
     Active Substance: MELOXICAM
  16. MORPHINE [Concomitant]
     Active Substance: MORPHINE
  17. IBUPROFEN [Concomitant]
     Active Substance: IBUPROFEN
  18. SERTRALINE [Concomitant]
     Active Substance: SERTRALINE HYDROCHLORIDE
  19. FENTANYL [Concomitant]
     Active Substance: FENTANYL

REACTIONS (1)
  - Hospice care [None]
